FAERS Safety Report 5292427-3 (Version None)
Quarter: 2007Q2

REPORT INFORMATION
  Report Type: 
  Country: None (occurrence: None)
  Receive Date: 20070410
  Receipt Date: 20070330
  Transmission Date: 20071010
  Serious: Yes (Other)
  Sender: FDA-Public Use
  Company Number: US-SHR-US-2007-011345

PATIENT
  Age: 25 Year
  Sex: Female
  Weight: 62 kg

DRUGS (2)
  1. MIRENA [Suspect]
     Indication: CONTRACEPTION
     Dosage: 20 A?G/DAY, CONT
     Route: 015
     Dates: start: 20070123, end: 20070330
  2. AVELOX [Concomitant]
     Dosage: INJECTED WEEKLY
     Dates: end: 20070201

REACTIONS (1)
  - JAUNDICE [None]
